FAERS Safety Report 5789300-0 (Version None)
Quarter: 2008Q2

REPORT INFORMATION
  Report Type: 
  Country: None (occurrence: None)
  Receive Date: 20080626
  Receipt Date: 20080617
  Transmission Date: 20081010
  Serious: Yes (Other)
  Sender: FDA-Public Use
  Company Number: PT-MERCK-0806PRT00011

PATIENT
  Age: 64 Year
  Sex: Female

DRUGS (1)
  1. FOSAMAX PLUS D [Suspect]
     Indication: OSTEOPOROSIS
     Route: 048

REACTIONS (4)
  - DIZZINESS [None]
  - GENERALISED OEDEMA [None]
  - MALAISE [None]
  - TONGUE OEDEMA [None]
